FAERS Safety Report 7412369-4 (Version None)
Quarter: 2011Q2

REPORT INFORMATION
  Report Type: 
  Country: None (occurrence: None)
  Receive Date: 20110413
  Receipt Date: 20110407
  Transmission Date: 20111010
  Serious: Yes (Hospitalization)
  Sender: FDA-Public Use
  Company Number: US-GILEAD-2011-0036574

PATIENT
  Sex: Male

DRUGS (17)
  1. SYMBICORT [Concomitant]
  2. AMBIEN [Concomitant]
  3. LETAIRIS [Suspect]
     Indication: MITRAL VALVE STENOSIS
  4. ENALAPRIL MALEATE [Concomitant]
  5. VICODIN [Concomitant]
  6. LETAIRIS [Suspect]
     Indication: PULMONARY HYPERTENSION
     Route: 048
     Dates: start: 20101118
  7. NITROGLYCERIN [Concomitant]
  8. ACETAMINOPHEN [Concomitant]
  9. DEMECLOCYCLINE HCL [Concomitant]
  10. CALCIUM CARBONATE [Concomitant]
  11. SPIRIVA [Concomitant]
  12. CLONAZEPAM [Concomitant]
  13. LETAIRIS [Suspect]
     Indication: CHRONIC OBSTRUCTIVE PULMONARY DISEASE
  14. PROAIR HFA [Concomitant]
  15. VITAMIN D [Concomitant]
  16. HYDROCHLOROTHIAZIDE [Concomitant]
  17. PREDNISONE [Concomitant]

REACTIONS (2)
  - CHRONIC OBSTRUCTIVE PULMONARY DISEASE [None]
  - PNEUMONIA [None]
